FAERS Safety Report 7974555-4 (Version None)
Quarter: 2011Q4

REPORT INFORMATION
  Report Type: 
  Country: None (occurrence: None)
  Receive Date: 20111213
  Receipt Date: 20111201
  Transmission Date: 20120403
  Serious: Yes (Hospitalization)
  Sender: FDA-Public Use
  Company Number: US-BAYER-2011-081840

PATIENT
  Age: 48 Year
  Sex: Female

DRUGS (5)
  1. NAPROXEN [Concomitant]
  2. IBUPROFEN (ADVIL) [Concomitant]
     Dosage: UNK UNK, PRN
     Route: 048
  3. YAZ [Suspect]
     Indication: MENSTRUATION IRREGULAR
     Dosage: UNK
     Dates: start: 20071024, end: 20100710
  4. MULTI-VITAMIN [Concomitant]
     Route: 048
  5. CALTRATE + D [Concomitant]
     Dosage: UNK UNK, TID
     Route: 048

REACTIONS (4)
  - PULMONARY EMBOLISM [None]
  - INJURY [None]
  - LOSS OF CONSCIOUSNESS [None]
  - PAIN [None]
